FAERS Safety Report 4731617-2 (Version None)
Quarter: 2005Q3

REPORT INFORMATION
  Report Type: 
  Country: None (occurrence: None)
  Receive Date: 20050725
  Receipt Date: 20050218
  Transmission Date: 20060218
  Serious: Yes (Other)
  Sender: FDA-Public Use
  Company Number: WAES 0502USA02481

PATIENT
  Sex: Male

DRUGS (2)
  1. VIOXX [Suspect]
     Dosage: PO
     Route: 048
     Dates: start: 20040701, end: 20040923
  2. VIOXX [Suspect]
     Dosage: PO
     Route: 048
     Dates: end: 20040501

REACTIONS (1)
  - SURGERY [None]
